FAERS Safety Report 9015395 (Version 4)
Quarter: 2013Q1

REPORT INFORMATION
  Report Type: Report from Study
  Country: JP (occurrence: JP)
  Receive Date: 20130116
  Receipt Date: 20130319
  Transmission Date: 20140127
  Serious: Yes (Other)
  Sender: FDA-Public Use
  Company Number: JP-SANOFI-AVENTIS-2013SA003127

PATIENT
  Age: 80 Year
  Sex: Female
  Weight: 50.5 kg

DRUGS (7)
  1. LANTUS SOLOSTAR [Suspect]
     Indication: TYPE 2 DIABETES MELLITUS
     Dosage: DOSE:16 UNIT(S)
     Route: 058
     Dates: start: 20120625
  2. SOLOSTAR [Suspect]
     Indication: DEVICE THERAPY
     Dates: start: 20120625
  3. NORVASC /DEN/ [Concomitant]
     Route: 048
  4. PLAVIX [Concomitant]
     Route: 048
  5. BLOPRESS [Concomitant]
     Route: 048
  6. HOKUNALIN [Concomitant]
     Dosage: FORM: TAPE
     Route: 061
  7. JANUVIA [Concomitant]
     Route: 048
     Dates: start: 20110720

REACTIONS (2)
  - Abasia [Unknown]
  - Blindness [Unknown]
